FAERS Safety Report 6272946-3 (Version None)
Quarter: 2009Q3

REPORT INFORMATION
  Report Type: 
  Country: None (occurrence: None)
  Receive Date: 20090720
  Receipt Date: 20070516
  Transmission Date: 20100115
  Serious: Yes (Hospitalization, Other)
  Sender: FDA-Public Use
  Company Number: US-ASTRAZENECA-2006UW11355

PATIENT
  Age: 12131 Day
  Sex: Female
  Weight: 101.1 kg

DRUGS (30)
  1. SEROQUEL [Suspect]
     Indication: SCHIZOPHRENIA
     Route: 048
     Dates: start: 19990101
  2. SEROQUEL [Suspect]
     Dosage: 200 MG - 300 MG
     Route: 048
     Dates: start: 20010608
  3. HALDOL [Suspect]
     Dates: start: 19970101
  4. HALDOL [Suspect]
     Dosage: 50 MG - 150 MG
     Dates: start: 20000218
  5. TEGRETOL [Concomitant]
  6. ADVAIR HFA [Concomitant]
  7. HYDROXYCHLOROQUINE SULFATE [Concomitant]
  8. DIFLUCAN [Concomitant]
  9. DIOVAN HCT [Concomitant]
  10. ACTOS [Concomitant]
  11. GLUCOVANCE [Concomitant]
  12. PREDNISONE [Concomitant]
  13. TEMOVATE [Concomitant]
  14. TRIAM CREAM [Concomitant]
  15. CYCLOBENZAPRINE [Concomitant]
  16. NAPROXEN [Concomitant]
  17. DESOXIMETASONE 0.25% CREAM [Concomitant]
  18. CARBAMAZEPINE [Concomitant]
  19. HYDROXYZINE HCL [Concomitant]
  20. TRAZODONE [Concomitant]
  21. NITROFURANTOIN MCR [Concomitant]
  22. POTASSIUM HYDROXIDE [Concomitant]
  23. BENZTROPINE MES [Concomitant]
  24. SULFAMETHOXAZOLE [Concomitant]
  25. PHENAZOPYRIDINE HCL TAB [Concomitant]
  26. ALLEGRA [Concomitant]
  27. SUDAL [Concomitant]
  28. ALTACE [Concomitant]
  29. SILVADENE [Concomitant]
  30. LOTRISONE [Concomitant]

REACTIONS (4)
  - DIABETES MELLITUS [None]
  - DIABETES MELLITUS INADEQUATE CONTROL [None]
  - DIABETIC GASTROPARESIS [None]
  - TYPE 1 DIABETES MELLITUS [None]
